FAERS Safety Report 5644661-8 (Version None)
Quarter: 2008Q1

REPORT INFORMATION
  Report Type: 
  Country: None (occurrence: None)
  Receive Date: 20080229
  Receipt Date: 20070510
  Transmission Date: 20080703
  Serious: No
  Sender: FDA-Public Use
  Company Number: A0650843A

PATIENT
  Age: 86 Year
  Sex: Male

DRUGS (17)
  1. VALTREX [Suspect]
     Indication: HERPES ZOSTER
     Dosage: 1G THREE TIMES PER DAY
     Route: 048
     Dates: start: 20070403
  2. LYRICA [Concomitant]
  3. AMOXICILLIN [Concomitant]
  4. NASONEX [Concomitant]
  5. ALBUTEROL [Concomitant]
  6. MUCINEX [Concomitant]
  7. FOLTX [Concomitant]
  8. LOPRESSOR [Concomitant]
  9. ASPIRIN [Concomitant]
  10. ZOLOFT [Concomitant]
  11. WARFARIN SODIUM [Concomitant]
  12. VIT C [Concomitant]
  13. WELLBUTRIN [Concomitant]
  14. TIMOPTIC [Concomitant]
  15. LUMIGAN [Concomitant]
  16. COZAAR [Concomitant]
  17. ZOCOR [Concomitant]

REACTIONS (7)
  - BALANCE DISORDER [None]
  - COUGH [None]
  - NEURALGIA [None]
  - PAIN [None]
  - PAIN OF SKIN [None]
  - RASH [None]
  - WHEEZING [None]
